FAERS Safety Report 5285367-7 (Version None)
Quarter: 2007Q2

REPORT INFORMATION
  Report Type: 
  Country: None (occurrence: None)
  Receive Date: 20070403
  Receipt Date: 20070327
  Transmission Date: 20071010
  Serious: Yes (Death, Hospitalization)
  Sender: FDA-Public Use
  Company Number: US-SHR-US-2006-021352

PATIENT
  Age: 42 Year
  Sex: Female

DRUGS (5)
  1. ULTRAVIST 370 [Suspect]
     Indication: COMPUTERISED TOMOGRAM ABDOMEN
     Dosage: UNK, 1 DOSE
     Dates: start: 20060713, end: 20060713
  2. FRESH FROZEN PLASMA [Concomitant]
     Dates: start: 20060712
  3. VITAMIN K [Concomitant]
     Indication: COAGULOPATHY
     Dates: start: 20060712
  4. RED BLOOD CELLS [Concomitant]
     Dates: start: 20060712
  5. FLOLAN [Concomitant]
     Dates: start: 20040101

REACTIONS (3)
  - PULMONARY HYPERTENSION [None]
  - RENAL FAILURE [None]
  - RIGHT VENTRICULAR FAILURE [None]
